FAERS Safety Report 23755598 (Version 1)
Quarter: 2024Q2

REPORT INFORMATION
  Report Type: Spontaneous
  Country: CA (occurrence: CA)
  Receive Date: 20240418
  Receipt Date: 20240418
  Transmission Date: 20240716
  Serious: Yes (Hospitalization, Other)
  Sender: FDA-Public Use
  Company Number: CA-AUROBINDO-AUR-APL-2024-017863

PATIENT
  Age: 35 Year
  Sex: Female
  Weight: 136 kg

DRUGS (1)
  1. AMOXICILLIN [Suspect]
     Active Substance: AMOXICILLIN
     Indication: Tooth abscess
     Dosage: 500 MILLIGRAM, 3 TIMES A DAY
     Route: 048

REACTIONS (2)
  - Anaphylactic shock [Recovered/Resolved]
  - Intensive care [Recovered/Resolved]
